FAERS Safety Report 9213132 (Version 1)
Quarter: 2013Q1

REPORT INFORMATION
  Report Type: Spontaneous
  Country: US (occurrence: None)
  Receive Date: 20120820
  Receipt Date: 20120820
  Transmission Date: 20140127
  Serious: No
  Sender: FDA-Public Use
  Company Number: 1000036936

PATIENT
  Age: 40 Year
  Sex: Male

DRUGS (2)
  1. VIIBRYD [Suspect]
     Indication: DEPRESSION
     Dosage: 10 MG 1IN 1 D
     Route: 048
     Dates: start: 201206, end: 201206
  2. VIIBRYD (VILAZODONE) [Suspect]
     Indication: DEPRESSION
     Dosage: - STOPPED

REACTIONS (9)
  - Tachyphrenia [None]
  - Thinking abnormal [None]
  - Agitation [None]
  - Headache [None]
  - Dizziness [None]
  - Irritability [None]
  - Crying [None]
  - Anxiety [None]
  - Fear [None]
